FAERS Safety Report 24562779 (Version 1)
Quarter: 2024Q4

REPORT INFORMATION
  Report Type: Report from Study
  Country: CN (occurrence: CN)
  Receive Date: 20241029
  Receipt Date: 20241029
  Transmission Date: 20250115
  Serious: Yes (Hospitalization)
  Sender: SANDOZ
  Company Number: CN-BEIGENE-BGN-2023-006500

PATIENT
  Age: 60 Year
  Sex: Male
  Weight: 59.5 kg

DRUGS (16)
  1. CARBOPLATIN [Suspect]
     Active Substance: CARBOPLATIN
     Indication: Lung neoplasm malignant
     Dosage: AUC 5
     Route: 042
     Dates: start: 20211029, end: 20220211
  2. PACLITAXEL [Suspect]
     Active Substance: PACLITAXEL
     Indication: Lung neoplasm malignant
     Dosage: 175 MG/M2
     Route: 042
     Dates: start: 20211029, end: 20220211
  3. IBUPROFEN [Concomitant]
     Active Substance: IBUPROFEN
     Dosage: STENGTH1%
     Route: 065
  4. IBUPROFEN [Concomitant]
     Active Substance: IBUPROFEN
     Dosage: STRENGTH-0.1G
     Route: 065
  5. IBUPROFEN [Concomitant]
     Active Substance: IBUPROFEN
     Dosage: STRENGTH-0.2G
     Route: 065
  6. IBUPROFEN [Concomitant]
     Active Substance: IBUPROFEN
     Dosage: STRENGTH-0.3G
     Route: 065
  7. IBUPROFEN [Concomitant]
     Active Substance: IBUPROFEN
     Dosage: STRENGTH-100MG
     Route: 065
  8. IBUPROFEN [Concomitant]
     Active Substance: IBUPROFEN
     Dosage: STRENGTH-200MG
     Route: 065
  9. IBUPROFEN [Concomitant]
     Active Substance: IBUPROFEN
     Dosage: STRENGTH-20MG
     Route: 065
  10. IBUPROFEN [Concomitant]
     Active Substance: IBUPROFEN
     Dosage: STRENGTH-50MG
     Route: 065
  11. IBUPROFEN [Concomitant]
     Active Substance: IBUPROFEN
     Dosage: STRENGTH300MG
     Route: 065
  12. IBUPROFEN [Concomitant]
     Active Substance: IBUPROFEN
     Indication: Pyrexia
     Dosage: UNK
     Route: 065
  13. PREGABALIN [Concomitant]
     Active Substance: PREGABALIN
     Indication: Pruritus
     Dosage: 75 MILLIGRAM, BID
     Route: 065
     Dates: start: 20230410
  14. PREGABALIN [Concomitant]
     Active Substance: PREGABALIN
     Dosage: STRENGTH-150MG
     Route: 065
  15. PREGABALIN [Concomitant]
     Active Substance: PREGABALIN
     Dosage: STRENGTH-75MG
     Route: 065
  16. PREGABALIN [Concomitant]
     Active Substance: PREGABALIN
     Dosage: UNK
     Route: 065

REACTIONS (2)
  - Pneumonia mycoplasmal [Recovered/Resolved]
  - COVID-19 [Recovered/Resolved]

NARRATIVE: CASE EVENT DATE: 20230623
